FAERS Safety Report 7950706-2 (Version None)
Quarter: 2011Q4

REPORT INFORMATION
  Report Type: 
  Country: None (occurrence: None)
  Receive Date: 20111201
  Receipt Date: 20111117
  Transmission Date: 20120403
  Serious: Yes (Other)
  Sender: FDA-Public Use
  Company Number: JP-BRISTOL-MYERS SQUIBB COMPANY-16231631

PATIENT
  Age: 26 Year
  Sex: Female

DRUGS (3)
  1. BLINDED: PLACEBO [Suspect]
     Indication: SCHIZOPHRENIA
     Dates: start: 20110824, end: 20111018
  2. ABILIFY [Suspect]
     Indication: SCHIZOPHRENIA
     Route: 048
     Dates: start: 20110531, end: 20111031
  3. ARIPIPRAZOLE [Suspect]
     Indication: SCHIZOPHRENIA
     Dates: start: 20110824, end: 20111018

REACTIONS (1)
  - SCHIZOPHRENIA [None]
